FAERS Safety Report 15556594 (Version 3)
Quarter: 2019Q1

REPORT INFORMATION
  Report Type: Spontaneous
  Country: IN (occurrence: IN)
  Receive Date: 20181026
  Receipt Date: 20190116
  Transmission Date: 20190417
  Serious: Yes (Other)
  Sender: FDA-Public Use
  Company Number: IN-PFIZER INC-2018322329

PATIENT
  Age: 58 Year
  Sex: Male

DRUGS (2)
  1. CHAMPIX [Suspect]
     Active Substance: VARENICLINE TARTRATE
     Indication: SMOKING CESSATION THERAPY
     Dosage: 0.5 MG, 2X/DAY
     Route: 048
  2. CHAMPIX [Suspect]
     Active Substance: VARENICLINE TARTRATE
     Dosage: 2 MG, DAILY (1 MG, 2 TABLETS, DAILY)
     Route: 048
     Dates: start: 20180801, end: 201812

REACTIONS (4)
  - Dizziness [Not Recovered/Not Resolved]
  - Spinal cord disorder [Recovering/Resolving]
  - Headache [Unknown]
  - Back pain [Recovering/Resolving]
